FAERS Safety Report 24891214 (Version 1)
Quarter: 2025Q1

REPORT INFORMATION
  Report Type: Spontaneous
  Country: US (occurrence: US)
  Receive Date: 20250127
  Receipt Date: 20250127
  Transmission Date: 20250408
  Serious: No
  Sender: SANOFI AVENTIS
  Company Number: US-SA-2025SA024455

PATIENT
  Age: 50 Year
  Sex: Female

DRUGS (5)
  1. DUPIXENT [Suspect]
     Active Substance: DUPILUMAB
     Indication: Dermatitis atopic
     Dosage: 300 MG, QOW
     Route: 058
  2. TACROLIMUS [Suspect]
     Active Substance: TACROLIMUS
     Indication: Dry skin
     Route: 061
  3. TACROLIMUS [Suspect]
     Active Substance: TACROLIMUS
     Indication: Pruritus
  4. MOMETASONE [Suspect]
     Active Substance: MOMETASONE
     Indication: Pruritus
     Route: 061
  5. MOMETASONE [Suspect]
     Active Substance: MOMETASONE
     Indication: Dry skin

REACTIONS (5)
  - Dry skin [Not Recovered/Not Resolved]
  - Skin atrophy [Unknown]
  - Skin fissures [Unknown]
  - Pruritus [Not Recovered/Not Resolved]
  - Arthralgia [Unknown]
